FAERS Safety Report 21512212 (Version 1)
Quarter: 2022Q4

REPORT INFORMATION
  Report Type: Report from Study
  Country: CL (occurrence: CL)
  Receive Date: 20221027
  Receipt Date: 20221027
  Transmission Date: 20230112
  Serious: Yes (Hospitalization, Other)
  Sender: FDA-Public Use
  Company Number: CL-UCBSA-2022052786

PATIENT
  Sex: Male
  Weight: 85 kg

DRUGS (3)
  1. ROTIGOTINE [Suspect]
     Active Substance: ROTIGOTINE
     Indication: Parkinson^s disease
     Dosage: 4 MILLIGRAM DAILY
     Route: 062
     Dates: start: 2022
  2. ROTIGOTINE [Suspect]
     Active Substance: ROTIGOTINE
     Dosage: 8MG
  3. BENSERAZIDE\LEVODOPA [Concomitant]
     Active Substance: BENSERAZIDE\LEVODOPA
     Indication: Product used for unknown indication

REACTIONS (8)
  - Liver injury [Recovered/Resolved]
  - Pneumonia [Unknown]
  - COVID-19 [Unknown]
  - Bedridden [Recovered/Resolved]
  - Pharyngeal swelling [Unknown]
  - Dysphagia [Unknown]
  - Movement disorder [Unknown]
  - Motor dysfunction [Unknown]

NARRATIVE: CASE EVENT DATE: 20220101
